FAERS Safety Report 21669552 (Version 1)
Quarter: 2022Q4

REPORT INFORMATION
  Report Type: Spontaneous
  Country: CN (occurrence: CN)
  Receive Date: 20221201
  Receipt Date: 20221201
  Transmission Date: 20230112
  Serious: Yes (Other)
  Sender: FDA-Public Use
  Company Number: CN-PFIZER INC-202201338433

PATIENT
  Age: 68 Year
  Sex: Female

DRUGS (1)
  1. VIZIMPRO [Suspect]
     Active Substance: DACOMITINIB
     Dosage: UNK
     Route: 048

REACTIONS (8)
  - Paronychia [Not Recovered/Not Resolved]
  - Inflammation [Not Recovered/Not Resolved]
  - Facial bones fracture [Unknown]
  - Stomatitis [Unknown]
  - Rash [Unknown]
  - Effusion [Unknown]
  - Quality of life decreased [Unknown]
  - Depressed mood [Unknown]
